FAERS Safety Report 24448374 (Version 2)
Quarter: 2024Q4

REPORT INFORMATION
  Report Type: Spontaneous
  Country: US (occurrence: US)
  Receive Date: 20241017
  Receipt Date: 20241223
  Transmission Date: 20250114
  Serious: Yes (Death, Other)
  Sender: AMGEN
  Company Number: US-AMGEN-USASP2024203625

PATIENT
  Sex: Male

DRUGS (1)
  1. TAVNEOS [Suspect]
     Active Substance: AVACOPAN
     Indication: Product used for unknown indication
     Dosage: 30 MILLIGRAM, BID (THREE CAPSULES TWICE DAILY WITH FOOD)
     Route: 048

REACTIONS (2)
  - Sepsis [Fatal]
  - Haematoma infection [Fatal]
